FAERS Safety Report 9986184 (Version 1)
Quarter: 2014Q1

REPORT INFORMATION
  Report Type: Report from Study
  Country: US (occurrence: US)
  Receive Date: 20140307
  Receipt Date: 20140307
  Transmission Date: 20141002
  Serious: No
  Sender: FDA-Public Use
  Company Number: US-ABBVIE-13P-163-1086752-00

PATIENT
  Age: 28 Year
  Sex: Male

DRUGS (4)
  1. HUMIRA [Suspect]
     Indication: CROHN^S DISEASE
     Dates: start: 20130322, end: 20130322
  2. HUMIRA [Suspect]
     Dates: start: 20130405, end: 20130405
  3. PENTASA [Concomitant]
     Indication: CROHN^S DISEASE
  4. UNKNOWN HEADACHE MEDICATION [Concomitant]
     Indication: HEADACHE

REACTIONS (6)
  - Nasopharyngitis [Recovered/Resolved]
  - Labyrinthitis [Recovered/Resolved]
  - Ear lobe infection [Not Recovered/Not Resolved]
  - Back pain [Not Recovered/Not Resolved]
  - Headache [Not Recovered/Not Resolved]
  - Pain in extremity [Recovered/Resolved]
